FAERS Safety Report 7266550-8 (Version None)
Quarter: 2011Q1

REPORT INFORMATION
  Report Type: 
  Country: None (occurrence: None)
  Receive Date: 20110131
  Receipt Date: 20110118
  Transmission Date: 20110831
  Serious: Yes (Other)
  Sender: FDA-Public Use
  Company Number: ES-ELI_LILLY_AND_COMPANY-ES201101004332

PATIENT
  Sex: Female
  Weight: 55 kg

DRUGS (6)
  1. FORTEO [Suspect]
     Indication: OSTEOPOROSIS
     Dosage: 20 UG, DAILY (1/D)
     Route: 058
     Dates: start: 20100331, end: 20101101
  2. DUPHALAC [Concomitant]
     Dosage: 1/48H
  3. MORFINA                            /00036302/ [Concomitant]
     Dosage: 1/24H
  4. NEXIUM [Concomitant]
     Dosage: 1/12H
  5. MASTICAL D [Concomitant]
     Dosage: 1/24H
  6. PRIMPERAN TAB [Concomitant]
     Dosage: 1/8H

REACTIONS (1)
  - MULTIPLE MYELOMA [None]
